FAERS Safety Report 13459856 (Version 4)
Quarter: 2017Q2

REPORT INFORMATION
  Report Type: Spontaneous
  Country: US (occurrence: US)
  Receive Date: 20170420
  Receipt Date: 20170517
  Transmission Date: 20170830
  Serious: No
  Sender: FDA-Public Use
  Company Number: PHEH2017US011370

PATIENT
  Sex: Female

DRUGS (1)
  1. VIGAMOX [Suspect]
     Active Substance: MOXIFLOXACIN HYDROCHLORIDE
     Indication: EYE INFECTION
     Route: 047

REACTIONS (4)
  - Blister [Not Recovered/Not Resolved]
  - Dry eye [Unknown]
  - Instillation site scab [None]
  - Eye disorder [Not Recovered/Not Resolved]
